FAERS Safety Report 12283584 (Version 1)
Quarter: 2016Q2

REPORT INFORMATION
  Report Type: Spontaneous
  Country: US (occurrence: US)
  Receive Date: 20160419
  Receipt Date: 20160419
  Transmission Date: 20160815
  Serious: No
  Sender: FDA-Public Use
  Company Number: ADR-2015-00312

PATIENT
  Age: 32 Year
  Sex: Female

DRUGS (14)
  1. ZOLPIDEM TARTRATE. [Suspect]
     Active Substance: ZOLPIDEM TARTRATE
     Dosage: 5 MG ONE TABLET AT BEDTIME ORALLY ONCE A DAY
     Route: 048
  2. VITAMIN D ERGOCALCIFEROL [Suspect]
     Active Substance: ERGOCALCIFEROL\VITAMIN D
     Dosage: 50000 UNIT ONE CAPSULE ORALLY ONCE A  WEEK
     Route: 048
  3. BACLOFEN. [Suspect]
     Active Substance: BACLOFEN
     Dosage: 29.04 MCG/DAY
     Route: 037
  4. MORPHINE SULFATE CR [Suspect]
     Active Substance: MORPHINE SULFATE
     Dosage: 15 MG ONE TABLET ORALLY EVERY 12 HOURS
     Route: 048
  5. SERTRALINE HCL [Suspect]
     Active Substance: SERTRALINE HYDROCHLORIDE
     Dosage: 50 MG ONE TABLET ORALLY ONCE A DAY
     Route: 048
  6. LEVOTHYROXINE SODIUM. [Suspect]
     Active Substance: LEVOTHYROXINE SODIUM
     Dosage: SODIUM 50 MCG ONE TABLET ORALLY ONCE A DAY
     Route: 048
  7. BACLOFEN. [Suspect]
     Active Substance: BACLOFEN
     Dosage: 26.40 MCG/DAY
     Route: 037
     Dates: start: 20150114, end: 20151006
  8. OXYCODONE HYDROCHLORIDE. [Suspect]
     Active Substance: OXYCODONE HYDROCHLORIDE
     Dosage: 15 MG ONE TABLET AS NEEDED FOR BREAKTHROUGH PAIN ORALLY DAILY
     Route: 048
  9. DOCUSATE SODIUM. [Suspect]
     Active Substance: DOCUSATE SODIUM
     Dosage: 100 MG TWO CAPSULES AS NEEDED ORALLY ONCE A DAY AT BEDTIME
     Route: 048
  10. POLYETHYLENE GLYCOL 3350. [Suspect]
     Active Substance: POLYETHYLENE GLYCOL 3350
     Dosage: ONE PACKET MIXED WITH 8 OUNCES OF FLUID ORALLY ONCE A DAY
     Route: 065
  11. SINEMET [Suspect]
     Active Substance: CARBIDOPA\LEVODOPA
     Dosage: 25-100 MG ONE TABLET ORALLY THREE TIMES A DAY
     Route: 048
  12. BACLOFEN. [Suspect]
     Active Substance: BACLOFEN
     Dosage: 10 MG TWO TABLETS AS NEED ORALLY DAILY
     Route: 048
  13. ONDANSETRON HCL [Suspect]
     Active Substance: ONDANSETRON HYDROCHLORIDE
     Dosage: 4 MG ONE TABLET ORALLY EVERY 12 HOURS
     Route: 048
  14. GABAPENTIN. [Suspect]
     Active Substance: GABAPENTIN
     Dosage: 600 MG ONE TABLET ORALLY EVERY 12 HOURS
     Route: 048
     Dates: end: 20150120

REACTIONS (5)
  - Medical device discomfort [Unknown]
  - Medical device site inflammation [Unknown]
  - Muscle spasticity [Unknown]
  - Pain [Unknown]
  - Dystonia [Unknown]

NARRATIVE: CASE EVENT DATE: 201501
